FAERS Safety Report 10609481 (Version 1)
Quarter: 2014Q4

REPORT INFORMATION
  Report Type: Spontaneous
  Country: US (occurrence: US)
  Receive Date: 20141126
  Receipt Date: 20141126
  Transmission Date: 20150529
  Serious: Yes (Death)
  Sender: FDA-Public Use
  Company Number: US-BEH-2014046632

PATIENT
  Age: 15 Year
  Sex: Male
  Weight: 27 kg

DRUGS (2)
  1. HIZENTRA [Suspect]
     Active Substance: HUMAN IMMUNOGLOBULIN G
     Indication: HYPOGAMMAGLOBULINAEMIA
     Route: 058
  2. HIZENTRA [Suspect]
     Active Substance: HUMAN IMMUNOGLOBULIN G
     Dosage: ??-MAY-2013 TO ??-SEP-2014
     Route: 058

REACTIONS (1)
  - Multi-organ failure [Fatal]

NARRATIVE: CASE EVENT DATE: 201409
